FAERS Safety Report 7546118-6 (Version None)
Quarter: 2011Q2

REPORT INFORMATION
  Report Type: 
  Country: None (occurrence: None)
  Receive Date: 20110607
  Receipt Date: 20110601
  Transmission Date: 20111010
  Serious: Yes (Death)
  Sender: FDA-Public Use
  Company Number: 1000021130

PATIENT
  Age: 34 Year
  Sex: Male

DRUGS (4)
  1. MDMA (METHYLENEDIOXYMETHAMPHETAMINE) [Suspect]
  2. CITALOPRAM HYDROBROMIDE [Suspect]
  3. 6-MAM (DIAMORPHINE) [Suspect]
  4. ETHANOL (ETHANOL) [Suspect]

REACTIONS (3)
  - TOXICITY TO VARIOUS AGENTS [None]
  - HEPATIC STEATOSIS [None]
  - PROSTATITIS [None]
